FAERS Safety Report 17651381 (Version 2)
Quarter: 2020Q2

REPORT INFORMATION
  Report Type: Report from Study
  Country: None (occurrence: US)
  Receive Date: 20200409
  Receipt Date: 20200413
  Transmission Date: 20200713
  Serious: Yes (Other)
  Sender: FDA-Public Use
  Company Number: US-HLS-202000311

PATIENT
  Age: 59 Year
  Sex: Male

DRUGS (1)
  1. CLOZAPINE. [Suspect]
     Active Substance: CLOZAPINE
     Route: 048

REACTIONS (4)
  - Liver disorder [Unknown]
  - Neutropenia [Unknown]
  - Neutropenia [Unknown]
  - Schizophrenia [Unknown]

NARRATIVE: CASE EVENT DATE: 20200113
